FAERS Safety Report 4636107-3 (Version None)
Quarter: 2005Q2

REPORT INFORMATION
  Report Type: 
  Country: None (occurrence: None)
  Receive Date: 20050414
  Receipt Date: 20050414
  Transmission Date: 20051028
  Serious: No
  Sender: FDA-Public Use
  Company Number: None

PATIENT
  Sex: Female
  Weight: 70 kg

DRUGS (6)
  1. MELPHALAN [Suspect]
     Dosage: 200 MG/M2 IV DAY -2
     Route: 042
     Dates: start: 20040622
  2. FLUDARABINE PHOSPHATE [Suspect]
     Dosage: 30 MG/M2 IV DAYS -7 THRU -3
     Route: 042
  3. CYCLOPHOSPHAMIDE [Suspect]
     Dosage: 1 G/M2 IV DAYS -4 THRU -3
     Route: 042
  4. METHOTREXATE [Suspect]
     Dosage: 5 MG/M2 DAYS DAY +1, +3, +6
  5. G-CSF [Suspect]
     Dosage: 5 MCG/KG/DAY +7 UNITL ANC} 1000
  6. TACROLIMUS [Concomitant]

REACTIONS (13)
  - BLOOD CULTURE POSITIVE [None]
  - CHILLS [None]
  - COUGH [None]
  - HAEMOGLOBIN DECREASED [None]
  - HYPOXIA [None]
  - LUNG DISORDER [None]
  - MALAISE [None]
  - MYALGIA [None]
  - NEUTROPHIL COUNT DECREASED [None]
  - PARAINFLUENZAE VIRUS INFECTION [None]
  - PYREXIA [None]
  - STAPHYLOCOCCAL INFECTION [None]
  - WHITE BLOOD CELL COUNT DECREASED [None]
